FAERS Safety Report 9316621 (Version 2)
Quarter: 2013Q3

REPORT INFORMATION
  Report Type: Spontaneous
  Country: US (occurrence: US)
  Receive Date: 20130530
  Receipt Date: 20130716
  Transmission Date: 20140515
  Serious: Yes (Hospitalization, Other)
  Sender: FDA-Public Use
  Company Number: US-SHIRE-ALL1-2013-03413

PATIENT
  Age: 9 Year
  Sex: Female
  Weight: 29.03 kg

DRUGS (7)
  1. VYVANSE [Suspect]
     Indication: ATTENTION DEFICIT/HYPERACTIVITY DISORDER
     Dosage: 80 MG, 1X/DAY:QD
     Route: 048
     Dates: end: 201303
  2. VYVANSE [Suspect]
     Dosage: 50 MG, 1X/DAY:QD
     Route: 048
     Dates: start: 201303
  3. INTUNIV [Suspect]
     Indication: PRODUCT USED FOR UNKNOWN INDICATION
     Dosage: 3 MG, 1X/DAY:QD
     Route: 048
     Dates: end: 201303
  4. INTUNIV [Suspect]
     Dosage: UNK UNK, UNKNOWN (UNKNOWN MG (1.5MG) UNKNOWN FREQUENCY DAILY)
     Route: 048
     Dates: start: 201303
  5. INTUNIV [Suspect]
     Dosage: 1 MG, 1X/DAY:QD (AT BEDTIME)
     Dates: start: 201303
  6. PAXIL /00500401/ [Suspect]
     Indication: PRODUCT USED FOR UNKNOWN INDICATION
     Dosage: 10 MG, 1X/DAY:QD
     Route: 065
     Dates: end: 20130522
  7. PAXIL /00500401/ [Suspect]
     Dosage: 10 MG, UNK
     Dates: start: 20130523

REACTIONS (11)
  - Suicidal behaviour [Unknown]
  - Suicidal ideation [Recovered/Resolved]
  - Psychotic disorder [Unknown]
  - Depression [Unknown]
  - Oppositional defiant disorder [Unknown]
  - Obsessive-compulsive disorder [Unknown]
  - Alopecia areata [Unknown]
  - Disturbance in social behaviour [Unknown]
  - Anxiety disorder [Unknown]
  - Prescribed overdose [Recovered/Resolved]
  - Wrong technique in drug usage process [Recovered/Resolved]
